FAERS Safety Report 21080606 (Version 1)
Quarter: 2022Q3

REPORT INFORMATION
  Report Type: Spontaneous
  Country: US (occurrence: US)
  Receive Date: 20220714
  Receipt Date: 20220714
  Transmission Date: 20221027
  Serious: No
  Sender: FDA-Public Use
  Company Number: US-RECKITT BENCKISER HEALTHCARE INT LIMITED-RB-081896-2022

PATIENT
  Age: 71 Year
  Sex: Male
  Weight: 68.027 kg

DRUGS (1)
  1. MUCINEX DM MAXIMUM STRENGTH [Suspect]
     Active Substance: DEXTROMETHORPHAN HYDROBROMIDE\GUAIFENESIN
     Indication: Respiratory tract congestion
     Dosage: 1 DOSAGE FORM, QD
     Route: 048
     Dates: start: 20211231, end: 20220107

REACTIONS (6)
  - Condition aggravated [Recovered/Resolved]
  - Salivary hypersecretion [Recovered/Resolved]
  - Oral pain [Recovered/Resolved]
  - Incorrect product administration duration [Recovered/Resolved]
  - Product use in unapproved indication [Recovered/Resolved]
  - Headache [Recovered/Resolved]

NARRATIVE: CASE EVENT DATE: 20220101
